FAERS Safety Report 12102270 (Version 1)
Quarter: 2016Q1

REPORT INFORMATION
  Report Type: Spontaneous
  Country: US (occurrence: US)
  Receive Date: 20160222
  Receipt Date: 20160222
  Transmission Date: 20160526
  Serious: No
  Sender: FDA-Public Use
  Company Number: US-AMNEAL PHARMACEUTICALS-2016AMN00085

PATIENT
  Sex: Male

DRUGS (1)
  1. METFORMIN HYDROCHLORIDE. [Suspect]
     Active Substance: METFORMIN HYDROCHLORIDE

REACTIONS (7)
  - Salivary hypersecretion [Unknown]
  - Retching [Unknown]
  - Drug ineffective [Unknown]
  - Throat irritation [Unknown]
  - Cough [Unknown]
  - Product substitution issue [Unknown]
  - Sneezing [Unknown]
